FAERS Safety Report 4578350-8 (Version None)
Quarter: 2005Q1

REPORT INFORMATION
  Report Type: 
  Country: None (occurrence: None)
  Receive Date: 20050209
  Receipt Date: 20050120
  Transmission Date: 20050727
  Serious: No
  Sender: FDA-Public Use
  Company Number: USA050188859

PATIENT
  Sex: Male

DRUGS (1)
  1. STRATTERA [Suspect]

REACTIONS (1)
  - HEPATIC ENZYME INCREASED [None]
